FAERS Safety Report 9284260 (Version 2)
Quarter: 2014Q2

REPORT INFORMATION
  Report Type: Report from Study
  Country: SE (occurrence: SE)
  Receive Date: 20130510
  Receipt Date: 20140428
  Transmission Date: 20141212
  Serious: Yes (Other)
  Sender: FDA-Public Use
  Company Number: SE-UCBSA-085209

PATIENT
  Age: 61 Year
  Sex: Female

DRUGS (4)
  1. CIMZIA [Suspect]
     Indication: RHEUMATOID ARTHRITIS
     Dosage: DOSE: 200 MG
     Route: 058
     Dates: start: 20121008, end: 20130129
  2. PREDNISOLONE [Concomitant]
     Dosage: DOSE: 7.5 MG
     Dates: start: 20120831
  3. METHOTREXATE [Concomitant]
     Dosage: DOSE: 20 MG
     Dates: start: 20120903
  4. METHOTREXATE [Concomitant]
     Dosage: DOSE: 10 MG

REACTIONS (2)
  - Hemiparesis [Not Recovered/Not Resolved]
  - Dizziness [Not Recovered/Not Resolved]
